FAERS Safety Report 10017900 (Version 1)
Quarter: 2014Q1

REPORT INFORMATION
  Report Type: Spontaneous
  Country: US (occurrence: US)
  Receive Date: 20140318
  Receipt Date: 20140318
  Transmission Date: 20141002
  Serious: Yes (Hospitalization, Other)
  Sender: FDA-Public Use
  Company Number: US-BRISTOL-MYERS SQUIBB COMPANY-18862672

PATIENT
  Age: 35 Year
  Sex: Female

DRUGS (2)
  1. ERBITUX [Suspect]
     Indication: COLON CANCER STAGE IV
  2. ERBITUX [Suspect]
     Indication: BREAST CANCER STAGE III

REACTIONS (2)
  - Skin infection [Unknown]
  - Dermatitis allergic [Unknown]
